FAERS Safety Report 5650630-4 (Version None)
Quarter: 2008Q1

REPORT INFORMATION
  Report Type: 
  Country: None (occurrence: None)
  Receive Date: 20080305
  Receipt Date: 20080219
  Transmission Date: 20080703
  Serious: Yes (Other)
  Sender: FDA-Public Use
  Company Number: US-BAYER-200810533BCC

PATIENT
  Sex: Male

DRUGS (3)
  1. PHILLIPS' LAXATIVE [Suspect]
     Indication: CONSTIPATION
     Route: 048
  2. MILK OF MAGNESIA TAB [Suspect]
     Indication: CONSTIPATION
     Route: 048
  3. ANTI-DIABETIC [Concomitant]

REACTIONS (1)
  - HEART RATE INCREASED [None]
